FAERS Safety Report 4622727-9 (Version None)
Quarter: 2005Q1

REPORT INFORMATION
  Report Type: 
  Country: None (occurrence: None)
  Receive Date: 20050329
  Receipt Date: 20050329
  Transmission Date: 20050727
  Serious: Yes (Life-Threatening)
  Sender: FDA-Public Use
  Company Number: None

PATIENT
  Sex: Female
  Weight: 77.1115 kg

DRUGS (2)
  1. HALFLYTELY [Suspect]
     Indication: COLITIS ULCERATIVE
     Dosage: 4 TABS ONCE ORAL
     Route: 048
     Dates: start: 20050328, end: 20050328
  2. . [Concomitant]

REACTIONS (3)
  - FALL [None]
  - HEAD INJURY [None]
  - SYNCOPE [None]
